FAERS Safety Report 14240558 (Version 3)
Quarter: 2018Q2

REPORT INFORMATION
  Report Type: Report from Study
  Country: AR (occurrence: AR)
  Receive Date: 20171130
  Receipt Date: 20180424
  Transmission Date: 20180711
  Serious: Yes (Life-Threatening, Hospitalization, Other)
  Sender: FDA-Public Use
  Company Number: PHHY2017AR028683

PATIENT
  Age: 36 Year
  Sex: Female

DRUGS (3)
  1. SIGNIFOR [Suspect]
     Active Substance: PASIREOTIDE
     Dosage: 0.9 MG, (2 APPLICATIONS PER DAY)
     Route: 065
  2. SIGNIFOR [Suspect]
     Active Substance: PASIREOTIDE
     Indication: CUSHING^S SYNDROME
     Dosage: 0.9 MG, (2 APPLICATIONS PER DAY)
     Route: 065
     Dates: start: 20170118, end: 20180127
  3. METOPROLOL. [Concomitant]
     Active Substance: METOPROLOL
     Indication: PRODUCT USED FOR UNKNOWN INDICATION
     Route: 065

REACTIONS (16)
  - Application site bruise [Recovered/Resolved]
  - Fatigue [Unknown]
  - Vision blurred [Unknown]
  - Polyuria [Unknown]
  - Progesterone decreased [Not Recovered/Not Resolved]
  - Menstruation delayed [Not Recovered/Not Resolved]
  - Polydipsia [Unknown]
  - Rash [Not Recovered/Not Resolved]
  - Diarrhoea [Not Recovered/Not Resolved]
  - Cortisol increased [Not Recovered/Not Resolved]
  - Hyperadrenalism [Not Recovered/Not Resolved]
  - Blood prolactin increased [Not Recovered/Not Resolved]
  - Haemorrhage [Not Recovered/Not Resolved]
  - Hyperglycaemia [Not Recovered/Not Resolved]
  - Feeling abnormal [Not Recovered/Not Resolved]
  - Blood glucose increased [Not Recovered/Not Resolved]

NARRATIVE: CASE EVENT DATE: 20170217
